FAERS Safety Report 19865868 (Version 1)
Quarter: 2021Q3

REPORT INFORMATION
  Report Type: Spontaneous
  Country: CA (occurrence: CA)
  Receive Date: 20210921
  Receipt Date: 20210921
  Transmission Date: 20211014
  Serious: Yes (Other)
  Sender: FDA-Public Use
  Company Number: CA-TAKEDA-2021TUS057058

PATIENT
  Age: 94 Year
  Sex: Female

DRUGS (1)
  1. HUMAN NORMAL IMMUNOGLOBULIN [Suspect]
     Active Substance: HUMAN IMMUNOGLOBULIN G
     Indication: PRODUCT USED FOR UNKNOWN INDICATION
     Dosage: 20 GRAM
     Route: 042

REACTIONS (8)
  - Acute pulmonary oedema [Unknown]
  - Tachypnoea [Unknown]
  - Blood pressure increased [Unknown]
  - Fluid overload [Unknown]
  - Hypertension [Unknown]
  - Blood culture negative [Unknown]
  - Dyspnoea [Unknown]
  - Tachycardia [Unknown]
